FAERS Safety Report 7014766-8 (Version None)
Quarter: 2010Q3

REPORT INFORMATION
  Report Type: 
  Country: None (occurrence: None)
  Receive Date: 20100927
  Receipt Date: 20100915
  Transmission Date: 20110219
  Serious: Yes (Other)
  Sender: FDA-Public Use
  Company Number: CA-JNJFOC-20100400737

PATIENT
  Sex: Female
  Weight: 70 kg

DRUGS (9)
  1. REMICADE [Suspect]
     Indication: RHEUMATOID ARTHRITIS
     Route: 042
  2. REMICADE [Suspect]
     Route: 042
  3. BIAXIN [Suspect]
     Indication: COUGH
  4. UROZIDE [Concomitant]
  5. METOPROLOL TARTRATE [Concomitant]
  6. PREDNISONE [Concomitant]
  7. METHOTREXATE [Concomitant]
     Route: 058
  8. VITAMIN D [Concomitant]
  9. FOSAMAX [Concomitant]

REACTIONS (2)
  - INFLUENZA LIKE ILLNESS [None]
  - OSTEOARTHRITIS [None]
